FAERS Safety Report 6910168-0 (Version None)
Quarter: 2010Q3

REPORT INFORMATION
  Report Type: 
  Country: None (occurrence: None)
  Receive Date: 20100806
  Receipt Date: 20100801
  Transmission Date: 20110219
  Serious: Yes (Hospitalization)
  Sender: FDA-Public Use
  Company Number: IL-MPIJNJ-2010-01304

PATIENT

DRUGS (3)
  1. VELCADE [Suspect]
     Indication: MULTIPLE MYELOMA
     Dosage: UNK
     Dates: start: 20090416, end: 20090507
  2. DOXIL                              /00330902/ [Suspect]
     Indication: MULTIPLE MYELOMA
  3. DOXIL                              /00330902/ [Suspect]
     Dosage: UNK
     Dates: start: 20090416, end: 20090507

REACTIONS (3)
  - DRUG EFFECT DECREASED [None]
  - GENERAL PHYSICAL HEALTH DETERIORATION [None]
  - HYPONATRAEMIA [None]
